FAERS Safety Report 6649586-7 (Version None)
Quarter: 2010Q1

REPORT INFORMATION
  Report Type: 
  Country: None (occurrence: None)
  Receive Date: 20100324
  Receipt Date: 20100324
  Transmission Date: 20100710
  Serious: Yes (Other)
  Sender: FDA-Public Use
  Company Number: None

PATIENT
  Sex: Female
  Weight: 90.7194 kg

DRUGS (1)
  1. MIRENA [Suspect]
     Indication: CONTRACEPTION
     Dates: start: 20090601, end: 20100101

REACTIONS (8)
  - ACNE [None]
  - ANXIETY [None]
  - BREAST PAIN [None]
  - LIBIDO DECREASED [None]
  - MOOD SWINGS [None]
  - OVARIAN CYST [None]
  - VAGINAL DISCHARGE [None]
  - WEIGHT INCREASED [None]
